FAERS Safety Report 6493322-4 (Version None)
Quarter: 2009Q4

REPORT INFORMATION
  Report Type: 
  Country: None (occurrence: None)
  Receive Date: 20091214
  Receipt Date: 20091202
  Transmission Date: 20100525
  Serious: Yes (Hospitalization)
  Sender: FDA-Public Use
  Company Number: US-ROCHE-673866

PATIENT
  Sex: Female
  Weight: 67 kg

DRUGS (2)
  1. BEVACIZUMAB [Suspect]
     Dosage: 5 MG/KG, Q2W
     Route: 042
     Dates: start: 20091006
  2. SORAFENIB [Suspect]
     Dosage: 200 MG, UNK
     Route: 048
     Dates: start: 20091006

REACTIONS (2)
  - CORONARY ARTERY STENOSIS [None]
  - TROPONIN I INCREASED [None]
